FAERS Safety Report 4999822-8 (Version None)
Quarter: 2006Q2

REPORT INFORMATION
  Report Type: 
  Country: None (occurrence: None)
  Receive Date: 20060511
  Receipt Date: 20060505
  Transmission Date: 20061013
  Serious: Yes (Hospitalization)
  Sender: FDA-Public Use
  Company Number: BG-SANOFI-SYNTHELABO-F01200601173

PATIENT
  Sex: Female

DRUGS (4)
  1. OXALIPLATIN [Suspect]
     Indication: COLON CANCER
     Route: 042
  2. FLUOROURACIL [Suspect]
     Dosage: 570 MG IV BOLUS FOLLOWED BY 850 MG IV INFUSION ON DAYS1+2
     Route: 042
  3. LEUCOVORIN [Suspect]
     Dosage: 300 MG IV ON DAYS 1+2
     Route: 042
  4. AVASTIN [Suspect]
     Route: 042

REACTIONS (1)
  - HEPATITIS TOXIC [None]
